FAERS Safety Report 4499059-5 (Version None)
Quarter: 2004Q4

REPORT INFORMATION
  Report Type: 
  Country: None (occurrence: None)
  Receive Date: 20041110
  Receipt Date: 20041110
  Transmission Date: 20050328
  Serious: Yes (Hospitalization)
  Sender: FDA-Public Use
  Company Number: None

PATIENT
  Age: 19 Year
  Sex: Male
  Weight: 84 kg

DRUGS (1)
  1. LITHIUM 675 MG [Suspect]
     Indication: SCHIZOAFFECTIVE DISORDER
     Dosage: 675 MG BID ORAL
     Route: 048
     Dates: start: 20030915, end: 20040915

REACTIONS (8)
  - BRADYCARDIA [None]
  - DRUG TOXICITY [None]
  - ELECTROCARDIOGRAM PR PROLONGATION [None]
  - HAEMODIALYSIS [None]
  - MENTAL STATUS CHANGES [None]
  - PANCYTOPENIA [None]
  - RENAL FAILURE ACUTE [None]
  - URINARY RETENTION [None]
